FAERS Safety Report 20409943 (Version 3)
Quarter: 2022Q1

REPORT INFORMATION
  Report Type: Spontaneous
  Country: US (occurrence: US)
  Receive Date: 20220201
  Receipt Date: 20220326
  Transmission Date: 20220423
  Serious: Yes (Other)
  Sender: FDA-Public Use
  Company Number: US-SA-SAC20220128000110

PATIENT
  Age: 59 Year
  Sex: Female

DRUGS (2)
  1. DUPIXENT [Suspect]
     Active Substance: DUPILUMAB
     Indication: Illness
     Dosage: 300 MG, QOW
     Route: 058
     Dates: start: 202202
  2. CAPSICUM\HERBALS [Suspect]
     Active Substance: CAPSICUM\HERBALS

REACTIONS (6)
  - Choking [Not Recovered/Not Resolved]
  - Eye infection [Unknown]
  - Product use in unapproved indication [Unknown]
  - Hot flush [Not Recovered/Not Resolved]
  - Retching [Not Recovered/Not Resolved]
  - Food allergy [Not Recovered/Not Resolved]
